FAERS Safety Report 8846572 (Version 2)
Quarter: 2012Q4

REPORT INFORMATION
  Report Type: Report from Study
  Country: GB (occurrence: GB)
  Receive Date: 20121017
  Receipt Date: 20121029
  Transmission Date: 20130627
  Serious: Yes (Death)
  Sender: FDA-Public Use
  Company Number: GB-ABBOTT-12P-167-0995869-00

PATIENT
  Weight: 74 kg

DRUGS (1)
  1. HUMIRA VIAL [Suspect]
     Indication: RHEUMATOID ARTHRITIS
     Route: 058
     Dates: start: 20080604, end: 20080604

REACTIONS (2)
  - Vascular dementia [Fatal]
  - Cerebrovascular disorder [Fatal]
